FAERS Safety Report 6808793-0 (Version None)
Quarter: 2010Q2

REPORT INFORMATION
  Report Type: 
  Country: None (occurrence: None)
  Receive Date: 20100630
  Receipt Date: 20091019
  Transmission Date: 20101027
  Serious: No
  Sender: FDA-Public Use
  Company Number: US-PFIZER INC-2009260858

PATIENT
  Sex: Male

DRUGS (1)
  1. VIAGRA [Suspect]
     Indication: ERECTILE DYSFUNCTION

REACTIONS (4)
  - DRUG INEFFECTIVE [None]
  - EAR DISCOMFORT [None]
  - EXPIRED DRUG ADMINISTERED [None]
  - FEELING HOT [None]
